FAERS Safety Report 8084921-7 (Version None)
Quarter: 2012Q1

REPORT INFORMATION
  Report Type: 
  Country: None (occurrence: None)
  Receive Date: 20120128
  Receipt Date: 20110325
  Transmission Date: 20120608
  Serious: No
  Sender: FDA-Public Use
  Company Number: US-ABBOTT-11P-163-0714695-00

PATIENT
  Sex: Female
  Weight: 77.18 kg

DRUGS (5)
  1. TRAMADOL HCL [Concomitant]
     Indication: PAIN
  2. HUMIRA [Suspect]
     Indication: COLITIS ULCERATIVE
  3. FLONASE [Concomitant]
     Indication: PRODUCT USED FOR UNKNOWN INDICATION
  4. HUMIRA [Suspect]
     Indication: CROHN'S DISEASE
     Dates: start: 20060101
  5. ASPIRIN [Concomitant]
     Indication: PAIN

REACTIONS (5)
  - LUPUS-LIKE SYNDROME [None]
  - POOR QUALITY SLEEP [None]
  - ARTHRALGIA [None]
  - RHEUMATOID ARTHRITIS [None]
  - PAIN [None]
